FAERS Safety Report 22043340 (Version 1)
Quarter: 2023Q1

REPORT INFORMATION
  Report Type: Spontaneous
  Country: US (occurrence: None)
  Receive Date: 20230228
  Receipt Date: 20230228
  Transmission Date: 20230418
  Serious: Yes (Hospitalization, Other)
  Sender: FDA-Public Use
  Company Number: US-MICRO LABS LIMITED-ML2023-01008

PATIENT
  Age: 37 Year
  Sex: Male

DRUGS (17)
  1. SUCCINYLCHOLINE CHLORIDE [Suspect]
     Active Substance: SUCCINYLCHOLINE CHLORIDE
  2. ARTICAINE [Suspect]
     Active Substance: ARTICAINE
     Indication: Anaesthesia
     Dosage: BUCCAL 3.6 ML OF 4% ARTICAINE 144MG
     Route: 002
  3. ARTICAINE [Suspect]
     Active Substance: ARTICAINE
     Dosage: DOSE 2, AFTER 45 MINUTES; 1.8ML OF 4% ARTICAINE 72 MG
  4. ARTICAINE [Suspect]
     Active Substance: ARTICAINE
     Dosage: FIFTEEN MINUTES AFTER THE LAST LOCAL ANAESTHESIA, 1.8ML OF 4% ARTICAINE 72 MG ALONG WITH EPINEPHRINE
  5. LIDOCAINE [Suspect]
     Active Substance: LIDOCAINE
     Indication: Anaesthesia
     Route: 004
  6. LIDOCAINE [Suspect]
     Active Substance: LIDOCAINE
     Dosage: 3.6MLOF 2% LIDOCAINE 72 MG
  7. MIDAZOLAM [Suspect]
     Active Substance: MIDAZOLAM
     Indication: Sedation
     Dosage: DOSE 1
     Route: 042
  8. MIDAZOLAM [Suspect]
     Active Substance: MIDAZOLAM
     Dosage: DOSE 2, AFTER 15 MINUTES
     Route: 042
  9. MIDAZOLAM [Suspect]
     Active Substance: MIDAZOLAM
     Dosage: DOSE 3
     Route: 042
  10. PROPOFOL [Suspect]
     Active Substance: PROPOFOL
  11. PROPOFOL [Suspect]
     Active Substance: PROPOFOL
  12. FLUMAZENIL [Concomitant]
     Active Substance: FLUMAZENIL
     Indication: Oxygen saturation decreased
     Dosage: 2 DOSES
  13. OXYCODONE [Concomitant]
     Active Substance: OXYCODONE
  14. DIOCTYL SODIUM SULFOSUCCINATE [Concomitant]
  15. SENNA LEAF [Concomitant]
     Active Substance: SENNA LEAF
  16. EPINEPHRINE [Concomitant]
     Active Substance: EPINEPHRINE
     Route: 004
  17. SODIUM CHLORIDE [Concomitant]
     Active Substance: SODIUM CHLORIDE

REACTIONS (2)
  - Hypoxia [Unknown]
  - Electrocardiogram ST segment elevation [Unknown]
